FAERS Safety Report 4842399-8 (Version None)
Quarter: 2005Q4

REPORT INFORMATION
  Report Type: 
  Country: None (occurrence: None)
  Receive Date: 20051201
  Receipt Date: 20051122
  Transmission Date: 20060501
  Serious: Yes (Other)
  Sender: FDA-Public Use
  Company Number: JP-BRISTOL-MYERS SQUIBB COMPANY-13196332

PATIENT
  Sex: Female

DRUGS (3)
  1. MITOMYCIN [Suspect]
     Indication: OVARIAN CANCER
  2. IRINOTECAN HCL [Concomitant]
     Indication: OVARIAN CANCER
  3. ETOPOSIDE [Concomitant]
     Indication: OVARIAN CANCER

REACTIONS (2)
  - CHEST PAIN [None]
  - DYSPNOEA [None]
